FAERS Safety Report 13355464 (Version 1)
Quarter: 2017Q1

REPORT INFORMATION
  Report Type: Spontaneous
  Country: US (occurrence: US)
  Receive Date: 20170321
  Receipt Date: 20170321
  Transmission Date: 20170429
  Serious: Yes (Life-Threatening, Hospitalization, Other)
  Sender: FDA-Public Use
  Company Number: None

PATIENT
  Age: 40 Year
  Sex: Male
  Weight: 120.76 kg

DRUGS (8)
  1. ALBUTEROL INHALER [Concomitant]
     Active Substance: ALBUTEROL
  2. NAVANE [Concomitant]
     Active Substance: THIOTHIXENE
  3. ASPIRIN. [Concomitant]
     Active Substance: ASPIRIN
  4. GARLIC PILLS [Concomitant]
  5. CLOZARIL [Suspect]
     Active Substance: CLOZAPINE
     Indication: SCHIZOAFFECTIVE DISORDER BIPOLAR TYPE
     Dates: start: 20161215, end: 20161231
  6. ONE A DAY MENS VITAMIN [Concomitant]
  7. GEODON [Concomitant]
     Active Substance: ZIPRASIDONE HYDROCHLORIDE\ZIPRASIDONE MESYLATE
  8. LITHIUM CARBONATE. [Concomitant]
     Active Substance: LITHIUM CARBONATE

REACTIONS (7)
  - Tachycardia [None]
  - Hypertension [None]
  - Inappropriate schedule of drug administration [None]
  - Laboratory test abnormal [None]
  - Coma [None]
  - Rash [None]
  - Tooth disorder [None]

NARRATIVE: CASE EVENT DATE: 20161230
